FAERS Safety Report 12436507 (Version 11)
Quarter: 2017Q2

REPORT INFORMATION
  Report Type: Report from Study
  Country: BE (occurrence: BE)
  Receive Date: 20160606
  Receipt Date: 20170406
  Transmission Date: 20170830
  Serious: Yes (Death, Hospitalization)
  Sender: FDA-Public Use
  Company Number: BE-ROCHE-1757490

PATIENT
  Age: 68 Year
  Sex: Male
  Weight: 100 kg

DRUGS (30)
  1. PACLITAXEL. [Suspect]
     Active Substance: PACLITAXEL
     Indication: NON-SMALL CELL LUNG CANCER STAGE IV
     Dosage: DATE OF MOST RECENT DOSE PRIOR TO THE EVENT ONSET: 18/JAN/2016 OF 300 MG  (CYCLE 4 - LAST CYCLE PER
     Route: 042
     Dates: start: 20151116
  2. DAFALGAN [Concomitant]
     Active Substance: ACETAMINOPHEN
     Indication: PAIN
     Route: 065
     Dates: start: 20160510, end: 20160513
  3. NEXIAM [Concomitant]
     Active Substance: ESOMEPRAZOLE
     Route: 065
     Dates: start: 20160510, end: 20160513
  4. ZOLPIDEM [Concomitant]
     Active Substance: ZOLPIDEM\ZOLPIDEM TARTRATE
     Indication: INSOMNIA
     Route: 065
     Dates: start: 20160118
  5. CACO3 [Concomitant]
     Indication: PROPHYLAXIS
     Route: 065
     Dates: start: 20160512, end: 20160513
  6. REMERGON [Concomitant]
     Active Substance: MIRTAZAPINE
     Indication: DYSPEPSIA
     Route: 065
     Dates: start: 20160510, end: 20160513
  7. NYSTATINE [Concomitant]
     Indication: ORAL FUNGAL INFECTION
     Route: 065
     Dates: start: 20160725
  8. CARBOPLATIN. [Suspect]
     Active Substance: CARBOPLATIN
     Indication: NON-SMALL CELL LUNG CANCER STAGE IV
     Dosage: DATE OF MOST RECENT DOSE PRIOR TO THE EVENT ONSET: 18/JAN/2016 OF 545 MG (CYCLE 4 - LAST CYCLE PER P
     Route: 042
     Dates: start: 20151116
  9. APRANAX [Concomitant]
     Active Substance: NAPROXEN
     Indication: PROPHYLAXIS
     Route: 065
     Dates: start: 20160118
  10. BEFACT [Concomitant]
     Indication: NEUROPATHY PERIPHERAL
     Route: 065
     Dates: start: 20160209
  11. ASAFLOW [Concomitant]
     Active Substance: ASPIRIN
     Indication: THROMBOSIS PROPHYLAXIS
     Route: 065
     Dates: start: 20160209
  12. OMEPRAZOLE. [Concomitant]
     Active Substance: OMEPRAZOLE
     Route: 065
     Dates: start: 20160725
  13. REMERGON [Concomitant]
     Active Substance: MIRTAZAPINE
     Route: 065
     Dates: start: 20160706, end: 20160708
  14. ACTRAPID [Concomitant]
     Active Substance: INSULIN HUMAN
     Route: 065
     Dates: start: 20160512, end: 20160513
  15. OXYGEN. [Concomitant]
     Active Substance: OXYGEN
     Indication: DYSPNOEA
     Route: 065
     Dates: start: 20160725
  16. DAKTARIN [Concomitant]
     Active Substance: MICONAZOLE NITRATE
     Indication: FUNGAL INFECTION
     Dosage: GEL
     Route: 065
     Dates: start: 20160601, end: 20160613
  17. DAFALGAN [Concomitant]
     Active Substance: ACETAMINOPHEN
     Route: 065
     Dates: start: 20160706
  18. MOTILIUM [Concomitant]
     Active Substance: DOMPERIDONE
     Indication: DECREASED APPETITE
     Route: 065
     Dates: start: 20160510, end: 20160513
  19. MOTILIUM [Concomitant]
     Active Substance: DOMPERIDONE
     Indication: NAUSEA
     Route: 065
     Dates: start: 20160315, end: 20160502
  20. ATEZOLIZUMAB [Suspect]
     Active Substance: ATEZOLIZUMAB
     Indication: NON-SMALL CELL LUNG CANCER STAGE IV
     Dosage: DATE OF MOST RECENT DOSE PRIOR TO THE EVENT ONSET: 02/MAY/2016
     Route: 042
     Dates: start: 20151116
  21. LYSANXIA [Concomitant]
     Active Substance: PRAZEPAM
     Indication: ANXIETY
     Route: 065
     Dates: start: 1990
  22. D-CURE [Concomitant]
     Indication: PROPHYLAXIS
     Route: 065
     Dates: start: 20160512, end: 20160513
  23. REMERGON [Concomitant]
     Active Substance: MIRTAZAPINE
     Route: 065
     Dates: start: 20160422, end: 20160523
  24. NEXIAM [Concomitant]
     Active Substance: ESOMEPRAZOLE
     Route: 065
     Dates: start: 20160706, end: 20160725
  25. OMEPRAZOLE. [Concomitant]
     Active Substance: OMEPRAZOLE
     Indication: DYSPEPSIA
     Route: 065
     Dates: start: 20160422
  26. CACO3 [Concomitant]
     Route: 065
     Dates: start: 20160706
  27. CLEXANE [Concomitant]
     Active Substance: ENOXAPARIN SODIUM
     Route: 065
     Dates: start: 20160706, end: 20160708
  28. APRANAX [Concomitant]
     Active Substance: NAPROXEN
     Indication: OROPHARYNGEAL PAIN
     Route: 065
     Dates: start: 20160129
  29. LYSANXIA [Concomitant]
     Active Substance: PRAZEPAM
     Route: 065
     Dates: start: 20160706
  30. D-CURE [Concomitant]
     Route: 065
     Dates: start: 20160706

REACTIONS (2)
  - Dyspnoea [Recovered/Resolved]
  - Interstitial lung disease [Fatal]

NARRATIVE: CASE EVENT DATE: 20160510
